FAERS Safety Report 8387464-6 (Version None)
Quarter: 2012Q2

REPORT INFORMATION
  Report Type: 
  Country: None (occurrence: None)
  Receive Date: 20120525
  Receipt Date: 20120521
  Transmission Date: 20120825
  Serious: Yes (Other)
  Sender: FDA-Public Use
  Company Number: PHEH2012US007939

PATIENT
  Sex: Female
  Weight: 19 kg

DRUGS (2)
  1. KEPPRA [Concomitant]
     Indication: EPILEPSY
     Dosage: 500 MG, QD
     Route: 048
     Dates: start: 20120305
  2. AFINITOR [Suspect]
     Indication: TUBEROUS SCLEROSIS
     Dosage: 2.5 MG, DAILY
     Route: 048
     Dates: start: 20120305

REACTIONS (7)
  - GRAND MAL CONVULSION [None]
  - COMPLEX PARTIAL SEIZURES [None]
  - MUSCLE RIGIDITY [None]
  - CONVULSION [None]
  - LOSS OF CONSCIOUSNESS [None]
  - MYOCLONUS [None]
  - STOMATITIS [None]
